FAERS Safety Report 8976221 (Version 1)
Quarter: 2012Q4

REPORT INFORMATION
  Report Type: 
  Country: EC (occurrence: EC)
  Receive Date: 20121220
  Receipt Date: 20121220
  Transmission Date: 20130627
  Serious: Yes (Hospitalization, Other)
  Sender: FDA-Public Use
  Company Number: PHHY2012EC117019

PATIENT
  Age: 67 Year
  Sex: Female

DRUGS (1)
  1. DIOVAN [Suspect]
     Indication: HYPERTENSION
     Dosage: 80 mg, QD
     Route: 048
     Dates: start: 20120316

REACTIONS (2)
  - Post procedural complication [Not Recovered/Not Resolved]
  - Blood pressure increased [Recovering/Resolving]
